FAERS Safety Report 4825688-2 (Version None)
Quarter: 2005Q4

REPORT INFORMATION
  Report Type: 
  Country: None (occurrence: None)
  Receive Date: 20051109
  Receipt Date: 20051031
  Transmission Date: 20060501
  Serious: Yes (Other)
  Sender: FDA-Public Use
  Company Number: 2005150596

PATIENT
  Age: 57 Year
  Sex: Male
  Weight: 97.5234 kg

DRUGS (3)
  1. ZOLOFT [Suspect]
     Indication: DEPRESSION
     Dosage: 300 MG (100 MG, 1 IN 1 D),
  2. WELLBUTRIN [Suspect]
     Indication: DEPRESSION
     Dates: start: 20050101, end: 20050101
  3. ATACAND [Concomitant]

REACTIONS (11)
  - ANGER [None]
  - ARTHRALGIA [None]
  - CHONDROPATHY [None]
  - FATIGUE [None]
  - GAIT DISTURBANCE [None]
  - HOSTILITY [None]
  - INTERVERTEBRAL DISC DISORDER [None]
  - NERVE COMPRESSION [None]
  - PAIN IN EXTREMITY [None]
  - SCIATICA [None]
  - TREATMENT NONCOMPLIANCE [None]
